FAERS Safety Report 16290243 (Version 2)
Quarter: 2019Q2

REPORT INFORMATION
  Report Type: Spontaneous
  Country: IT (occurrence: IT)
  Receive Date: 20190509
  Receipt Date: 20190521
  Transmission Date: 20190711
  Serious: Yes (Other)
  Sender: FDA-Public Use
  Company Number: IT-ACCORD-126591

PATIENT
  Age: 63 Year
  Sex: Male

DRUGS (3)
  1. SELOKEN [Suspect]
     Active Substance: METOPROLOL
     Indication: HYPERTENSION
     Dosage: STRENGTH:100 MG
     Route: 048
     Dates: start: 20181012
  2. RAMIPRIL. [Suspect]
     Active Substance: RAMIPRIL
     Indication: HYPERTENSION
     Route: 048
     Dates: start: 20181012
  3. LIXIANA [Concomitant]
     Active Substance: EDOXABAN TOSYLATE

REACTIONS (2)
  - Therapy non-responder [Unknown]
  - Blood pressure increased [Recovering/Resolving]

NARRATIVE: CASE EVENT DATE: 20181216
